FAERS Safety Report 14563094 (Version 2)
Quarter: 2018Q1

REPORT INFORMATION
  Report Type: Spontaneous
  Country: FR (occurrence: FR)
  Receive Date: 20180222
  Receipt Date: 20180315
  Transmission Date: 20180509
  Serious: Yes (Death)
  Sender: FDA-Public Use
  Company Number: FR-SA-2018SA036346

PATIENT
  Age: 58 Year
  Sex: Female
  Weight: 78 kg

DRUGS (9)
  1. IMOVANE [Suspect]
     Active Substance: ZOPICLONE
     Indication: DEPRESSION
     Route: 048
     Dates: start: 201801
  2. DUPILUMAB [Suspect]
     Active Substance: DUPILUMAB
     Indication: ASTHMA
     Route: 058
     Dates: start: 20171222, end: 20180105
  3. XANAX [Suspect]
     Active Substance: ALPRAZOLAM
     Indication: DEPRESSION
     Route: 048
     Dates: start: 201801
  4. TOBI [Concomitant]
     Active Substance: TOBRAMYCIN
     Dosage: ?SOLUTION FOR INHALATION BY NEBULIZER
     Route: 065
     Dates: start: 201710
  5. MIANSERIN HYDROCHLORIDE [Suspect]
     Active Substance: MIANSERIN HYDROCHLORIDE
     Indication: DEPRESSION
     Route: 048
     Dates: start: 201801
  6. SERETIDE [Concomitant]
     Active Substance: FLUTICASONE PROPIONATE\SALMETEROL XINAFOATE
     Route: 055
     Dates: start: 1998
  7. LEXOMIL [Suspect]
     Active Substance: BROMAZEPAM
     Route: 048
  8. SPIRIVA RESPIMAT [Concomitant]
     Active Substance: TIOTROPIUM BROMIDE
     Dosage: ?SOLUTION FOR INHALATION
     Route: 055
     Dates: start: 1998
  9. ZITHROMAX [Concomitant]
     Active Substance: AZITHROMYCIN DIHYDRATE
     Route: 048
     Dates: start: 201704

REACTIONS (2)
  - Sudden death [Fatal]
  - Somnolence [Fatal]

NARRATIVE: CASE EVENT DATE: 20180118
